FAERS Safety Report 13191875 (Version 1)
Quarter: 2017Q1

REPORT INFORMATION
  Report Type: Spontaneous
  Country: US (occurrence: US)
  Receive Date: 20170206
  Receipt Date: 20170206
  Transmission Date: 20170428
  Serious: Yes (Congenital Anomaly)
  Sender: FDA-Public Use
  Company Number: None

PATIENT
  Age: 34 Year
  Sex: Female
  Weight: 60.7 kg

DRUGS (1)
  1. ACCUTANE [Suspect]
     Active Substance: ISOTRETINOIN
     Indication: ACNE

REACTIONS (4)
  - Maternal drugs affecting foetus [None]
  - Drug effect prolonged [None]
  - Interruption of aortic arch [None]
  - Paternal drugs affecting foetus [None]

NARRATIVE: CASE EVENT DATE: 20161212
